FAERS Safety Report 6238744-1 (Version None)
Quarter: 2009Q2

REPORT INFORMATION
  Report Type: 
  Country: None (occurrence: None)
  Receive Date: 20090617
  Receipt Date: 20090617
  Transmission Date: 20091009
  Serious: Yes (Life-Threatening, Hospitalization)
  Sender: FDA-Public Use
  Company Number: None

PATIENT

DRUGS (2)
  1. ZOLOFT [Suspect]
     Indication: DEPRESSION
     Dosage: PO
     Route: 048
     Dates: start: 20010101, end: 20020101
  2. ZOLOFT [Suspect]
     Indication: DEPRESSION
     Dosage: PO
     Route: 048
     Dates: start: 20060501, end: 20090610

REACTIONS (15)
  - ABNORMAL BEHAVIOUR [None]
  - AFFECT LABILITY [None]
  - BRAIN INJURY [None]
  - DEPRESSION [None]
  - EDUCATIONAL PROBLEM [None]
  - IMPAIRED WORK ABILITY [None]
  - INJURY [None]
  - JUDGEMENT IMPAIRED [None]
  - LOSS OF EMPLOYMENT [None]
  - PSYCHOTIC DISORDER [None]
  - REGRESSIVE BEHAVIOUR [None]
  - SELF ESTEEM DECREASED [None]
  - SOCIAL PHOBIA [None]
  - THINKING ABNORMAL [None]
  - UNEMPLOYMENT [None]
